FAERS Safety Report 21917636 (Version 1)
Quarter: 2023Q1

REPORT INFORMATION
  Report Type: Report from Study
  Country: BE (occurrence: BE)
  Receive Date: 20230127
  Receipt Date: 20230127
  Transmission Date: 20230417
  Serious: Yes (Death)
  Sender: FDA-Public Use
  Company Number: BE-ABBVIE-4283716

PATIENT
  Age: 64 Year
  Sex: Male
  Weight: 120 kg

DRUGS (6)
  1. CARBIDOPA\LEVODOPA [Suspect]
     Active Substance: CARBIDOPA\LEVODOPA
     Indication: Parkinson^s disease
     Dosage: MD: 5.8 ML, CD: 1.8 ML/H, ED: 2.0 ML, NCD: 1.8 ML/H DURING 24 HOURS
     Route: 050
     Dates: start: 20221017, end: 20230120
  2. CARBIDOPA\LEVODOPA [Suspect]
     Active Substance: CARBIDOPA\LEVODOPA
     Route: 050
     Dates: start: 20140512
  3. CARBIDOPA\LEVODOPA [Suspect]
     Active Substance: CARBIDOPA\LEVODOPA
     Dosage: MD: 2.8 ML, CD: 1.6 ML/H, ED: 2.0 ML DURING 24 HOURS
     Route: 050
     Dates: start: 20221006, end: 20221017
  4. PRAMIPEXOLE [Concomitant]
     Active Substance: PRAMIPEXOLE
     Indication: Product used for unknown indication
     Dosage: 0.18 UNKNOWN
  5. STALEVO [Concomitant]
     Active Substance: CARBIDOPA\ENTACAPONE\LEVODOPA
     Indication: Product used for unknown indication
     Dosage: FORM STRENGTH: 150MG
  6. BENSERAZIDE\LEVODOPA [Concomitant]
     Active Substance: BENSERAZIDE\LEVODOPA
     Indication: Product used for unknown indication
     Dosage: FORM STRENGTH: 125 MG
     Route: 065

REACTIONS (5)
  - Death [Fatal]
  - Decubitus ulcer [Unknown]
  - Bronchitis [Unknown]
  - General physical health deterioration [Unknown]
  - Infected skin ulcer [Unknown]

NARRATIVE: CASE EVENT DATE: 20230120
